FAERS Safety Report 5032548-3 (Version None)
Quarter: 2006Q2

REPORT INFORMATION
  Report Type: 
  Country: None (occurrence: None)
  Receive Date: 20060620
  Receipt Date: 20060608
  Transmission Date: 20061013
  Serious: Yes (Hospitalization)
  Sender: FDA-Public Use
  Company Number: US-2006-014620

PATIENT
  Sex: Female

DRUGS (1)
  1. LEUKINE [Suspect]
     Indication: CROHN'S DISEASE
     Dosage: 0.5ML   1X/DAY, SUBCUTANEOUS
     Route: 058
     Dates: start: 20060426, end: 20060606

REACTIONS (1)
  - PERINEAL ABSCESS [None]
